FAERS Safety Report 8396923-1 (Version None)
Quarter: 2012Q2

REPORT INFORMATION
  Report Type: 
  Country: None (occurrence: None)
  Receive Date: 20120530
  Receipt Date: 20120521
  Transmission Date: 20120825
  Serious: Yes (Hospitalization)
  Sender: FDA-Public Use
  Company Number: GB-TEVA-334644ISR

PATIENT
  Age: 72 Year
  Sex: Male

DRUGS (9)
  1. ASPIRIN [Concomitant]
     Dosage: 75 MILLIGRAM;
     Route: 048
  2. LACTULOSE [Concomitant]
     Dosage: AS REQUIRED
     Route: 048
  3. SALMETEROL AND FLUTICASONE [Concomitant]
     Dosage: 4 DOSAGE FORMS;
     Route: 055
  4. OLANZAPINE [Suspect]
     Dosage: 20 MILLIGRAM;
     Route: 048
     Dates: start: 20120102, end: 20120411
  5. MOMETASONE FUROATE [Concomitant]
     Dosage: 4 DOSAGE FORMS;
     Route: 045
  6. CYANOCOBALAMIN [Concomitant]
     Dosage: 50 MICROGRAM;
     Route: 048
  7. ALBUTEROL [Concomitant]
     Dosage: 1-2 PUFFS AS REQUIRED (PRN)
     Route: 055
  8. MIRTAZAPINE [Suspect]
     Dosage: 30 MILLIGRAM;
     Route: 048
     Dates: end: 20120411
  9. TRAZODONE HCL [Suspect]
     Dosage: 200 MILLIGRAM;
     Route: 048
     Dates: end: 20120411

REACTIONS (2)
  - UNRESPONSIVE TO STIMULI [None]
  - NEUROLEPTIC MALIGNANT SYNDROME [None]
